FAERS Safety Report 25647120 (Version 3)
Quarter: 2025Q3

REPORT INFORMATION
  Report Type: Report from Study
  Country: CA (occurrence: CA)
  Receive Date: 20250806
  Receipt Date: 20250926
  Transmission Date: 20251021
  Serious: Yes (Other)
  Sender: CURRAX PHARMACEUTICALS
  Company Number: CA-BAUSCH-BH-2025-015585

PATIENT
  Age: 69 Year
  Sex: Male
  Weight: 126.98 kg

DRUGS (2)
  1. CONTRAVE [Suspect]
     Active Substance: BUPROPION HYDROCHLORIDE\NALTREXONE HYDROCHLORIDE
     Indication: Weight control
     Dosage: ONCE DAILY AM, 1 DOSAGE FORM (1 DOSAGE FORM, 1 IN 1 DAY)
     Route: 065
     Dates: start: 20250721, end: 20250726
  2. ZOPICLONE [Concomitant]
     Active Substance: ZOPICLONE
     Indication: Insomnia
     Route: 065

REACTIONS (10)
  - Atrial fibrillation [Recovered/Resolved]
  - Panic attack [Recovered/Resolved]
  - Blood pressure increased [Recovered/Resolved]
  - Impaired driving ability [Recovered/Resolved]
  - Pollakiuria [Recovered/Resolved]
  - Headache [Recovered/Resolved]
  - Diarrhoea [Recovered/Resolved]
  - Agitation [Recovered/Resolved]
  - Dizziness [Recovered/Resolved]
  - Feeling abnormal [Recovered/Resolved]

NARRATIVE: CASE EVENT DATE: 20250701
